FAERS Safety Report 5478621-7 (Version None)
Quarter: 2007Q4

REPORT INFORMATION
  Report Type: 
  Country: None (occurrence: None)
  Receive Date: 20071005
  Receipt Date: 20071001
  Transmission Date: 20080405
  Serious: Yes (Death)
  Sender: FDA-Public Use
  Company Number: GB-SHR-GB-2007-034750

PATIENT
  Sex: Male

DRUGS (1)
  1. CAMPATH [Suspect]
     Dosage: 10 WEEKS OF TREATMENT
     Dates: start: 20070101, end: 20070101

REACTIONS (2)
  - INFECTION [None]
  - MALIGNANT NEOPLASM PROGRESSION [None]
